FAERS Safety Report 12352484 (Version 2)
Quarter: 2016Q2

REPORT INFORMATION
  Report Type: Spontaneous
  Country: US (occurrence: US)
  Receive Date: 20160510
  Receipt Date: 20160516
  Transmission Date: 20160815
  Serious: Yes (Other)
  Sender: FDA-Public Use
  Company Number: US-MYLANLABS-2016M1018083

PATIENT

DRUGS (6)
  1. ESTRADIOL. [Concomitant]
     Active Substance: ESTRADIOL
     Indication: MENOPAUSE
     Dosage: 0.5 MG, QD
     Dates: start: 20160420, end: 20160426
  2. EMSAM [Suspect]
     Active Substance: SELEGILINE
     Indication: DEPRESSION
     Dosage: 6 MG, QD
     Route: 062
     Dates: start: 20160328, end: 20160425
  3. ESTRADIOL. [Concomitant]
     Active Substance: ESTRADIOL
     Indication: MENOPAUSE
     Dosage: 0.25 MG, QD
     Dates: end: 20160420
  4. CARBAMAZEPIN [Concomitant]
     Active Substance: CARBAMAZEPINE
     Dosage: 100 MG, HS
     Dates: start: 20160413, end: 20160420
  5. VERAPAMIL [Concomitant]
     Active Substance: VERAPAMIL HYDROCHLORIDE
     Indication: MIGRAINE
     Dosage: 50 MG, HS
  6. EQUETRO [Suspect]
     Active Substance: CARBAMAZEPINE
     Dosage: 100 MG, BID
     Dates: start: 20160420, end: 20160424

REACTIONS (5)
  - Rash [Recovering/Resolving]
  - Throat irritation [Recovering/Resolving]
  - Urticaria [Recovered/Resolved]
  - Lip swelling [Recovered/Resolved]
  - Neutrophil count increased [Recovering/Resolving]

NARRATIVE: CASE EVENT DATE: 20160426
